FAERS Safety Report 5085855-2 (Version None)
Quarter: 2006Q3

REPORT INFORMATION
  Report Type: 
  Country: None (occurrence: None)
  Receive Date: 20060703
  Receipt Date: 20060224
  Transmission Date: 20061208
  Serious: No
  Sender: FDA-Public Use
  Company Number: 2006S1001717

PATIENT
  Age: 60 Year
  Sex: Male

DRUGS (6)
  1. CLOZAPINE [Suspect]
     Indication: SCHIZOPHRENIA, PARANOID TYPE
     Dosage: 300 MG;HS;ORAL
     Route: 048
     Dates: end: 20060106
  2. GLIPIZIDE [Concomitant]
  3. LISINOPRIL [Concomitant]
  4. BENZTROPINE MESYLATE [Concomitant]
  5. OLANZAPINE [Concomitant]
  6. VALPROATE SODIUM [Concomitant]

REACTIONS (1)
  - GRANULOCYTOPENIA [None]
